FAERS Safety Report 5010069-1 (Version None)
Quarter: 2006Q2

REPORT INFORMATION
  Report Type: 
  Country: None (occurrence: None)
  Receive Date: 20060524
  Receipt Date: 20060515
  Transmission Date: 20061013
  Serious: Yes (Other)
  Sender: FDA-Public Use
  Company Number: JP-SANOFI-SYNTHELABO-A01200603882

PATIENT
  Sex: Male

DRUGS (2)
  1. OXALIPLATIN [Suspect]
     Indication: PANCREATIC CARCINOMA
     Dosage: DOSE UNKNOWN
     Route: 041
  2. GEMZAR [Suspect]
     Dosage: DOSE UNKNOWN
     Route: 041

REACTIONS (3)
  - BLOOD URIC ACID INCREASED [None]
  - HYPERKALAEMIA [None]
  - URINARY RETENTION [None]
